FAERS Safety Report 8770477 (Version 7)
Quarter: 2014Q1

REPORT INFORMATION
  Report Type: Spontaneous
  Country: US (occurrence: US)
  Receive Date: 20120906
  Receipt Date: 20140321
  Transmission Date: 20141002
  Serious: Yes (Hospitalization)
  Sender: FDA-Public Use
  Company Number: US-B.I. PHARMACEUTICALS,INC./RIDGEFIELD-2012-BP-21393BP

PATIENT
  Age: 82 Year
  Sex: Female
  Weight: 89.81 kg

DRUGS (16)
  1. PRADAXA [Suspect]
     Indication: ANTICOAGULANT THERAPY
     Dosage: 300 MG
     Route: 048
     Dates: start: 20110712, end: 20110928
  2. PRADAXA [Suspect]
     Indication: ATRIAL FIBRILLATION
  3. CARVEDILOL [Concomitant]
     Dosage: 50 MG
     Route: 048
     Dates: start: 2004
  4. VIT C [Concomitant]
     Route: 065
  5. HUMALOG [Concomitant]
     Route: 065
     Dates: start: 2007
  6. LANTUS [Concomitant]
     Dosage: 30 U
     Route: 058
  7. LASIX [Concomitant]
     Dosage: 40 MG
     Route: 048
     Dates: start: 2006
  8. LISINOPRIL [Concomitant]
     Dosage: 40 MG
     Route: 048
     Dates: start: 2007
  9. LORTAB [Concomitant]
     Route: 065
     Dates: start: 2005
  10. MULTIVITAMIN [Concomitant]
     Route: 065
  11. PROAIR [Concomitant]
     Route: 065
     Dates: start: 2008
  12. SERTRALINE HCL [Concomitant]
     Dosage: 100 MG
     Route: 065
     Dates: start: 2008
  13. ZOCOR [Concomitant]
     Dosage: 20 MG
     Route: 065
  14. MAALOX [Concomitant]
     Indication: DYSPEPSIA
     Route: 065
  15. ZOLOFT [Concomitant]
     Dosage: 100 MG
     Route: 048
  16. SIMVASTATIN [Concomitant]
     Dosage: 25 MG
     Route: 048

REACTIONS (3)
  - Gastrointestinal haemorrhage [Recovered/Resolved]
  - Haemorrhagic anaemia [Recovered/Resolved]
  - Epistaxis [Unknown]
